FAERS Safety Report 7701562-9 (Version None)
Quarter: 2011Q3

REPORT INFORMATION
  Report Type: 
  Country: None (occurrence: None)
  Receive Date: 20110822
  Receipt Date: 20110818
  Transmission Date: 20111222
  Serious: Yes (Hospitalization, Other)
  Sender: FDA-Public Use
  Company Number: US-BRISTOL-MYERS SQUIBB COMPANY-15983372

PATIENT
  Age: 17 Year
  Sex: Male
  Weight: 61 kg

DRUGS (18)
  1. ETOPOSIDE [Suspect]
     Indication: RHABDOMYOSARCOMA
     Route: 065
     Dates: start: 20100908
  2. DOXORUBICIN HCL [Suspect]
     Indication: RHABDOMYOSARCOMA
     Route: 042
     Dates: start: 20100908
  3. MESNA [Concomitant]
  4. DACTINOMYCIN [Suspect]
     Indication: RHABDOMYOSARCOMA
     Route: 065
     Dates: start: 20100908
  5. FILGRASTIM [Concomitant]
  6. VANCOMYCIN [Concomitant]
  7. IFOSFAMIDE [Suspect]
     Indication: RHABDOMYOSARCOMA
     Route: 065
     Dates: start: 20100908
  8. VINCRISTINE [Suspect]
     Indication: RHABDOMYOSARCOMA
     Route: 065
     Dates: start: 20100908
  9. RANITIDINE [Concomitant]
  10. SILVADENE [Concomitant]
  11. PROMETHAZINE [Concomitant]
  12. POLYETHYLENE GLYCOL [Concomitant]
  13. DEXAMETHASONE [Concomitant]
  14. CYCLOPHOSPHAMIDE [Suspect]
     Indication: RHABDOMYOSARCOMA
     Dosage: 1 DF : 40 UNITS NOS
     Route: 065
     Dates: start: 20100908
  15. IRINOTECAN HCL [Suspect]
     Indication: RHABDOMYOSARCOMA
     Route: 042
     Dates: start: 20100908
  16. ONDANSETRON [Concomitant]
  17. CARAFATE [Concomitant]
     Dates: start: 20110101
  18. SULFAMETHOXAZOLE AND TRIMETHOPRIM [Concomitant]

REACTIONS (8)
  - VOMITING [None]
  - OESOPHAGEAL PAIN [None]
  - STOMATITIS [None]
  - SKIN INFECTION [None]
  - NEUTROPHIL COUNT DECREASED [None]
  - ANAEMIA [None]
  - WHITE BLOOD CELL COUNT DECREASED [None]
  - PLATELET COUNT DECREASED [None]
